FAERS Safety Report 7397391-9 (Version None)
Quarter: 2011Q2

REPORT INFORMATION
  Report Type: 
  Country: None (occurrence: None)
  Receive Date: 20110401
  Receipt Date: 20110401
  Transmission Date: 20111010
  Serious: Yes (Life-Threatening)
  Sender: FDA-Public Use
  Company Number: None

PATIENT
  Age: 63 Year
  Sex: Male
  Weight: 113.3993 kg

DRUGS (1)
  1. ZOCOR [Suspect]
     Indication: BLOOD CHOLESTEROL
     Dosage: 10 MG 1 AT BEDTIME MOUTH
     Route: 048

REACTIONS (4)
  - SWELLING FACE [None]
  - DYSPNOEA [None]
  - MUSCLE INJURY [None]
  - MYALGIA [None]
